FAERS Safety Report 17810918 (Version 1)
Quarter: 2020Q2

REPORT INFORMATION
  Report Type: Spontaneous
  Country: US (occurrence: US)
  Receive Date: 20200521
  Receipt Date: 20200521
  Transmission Date: 20200714
  Serious: No
  Sender: FDA-Public Use
  Company Number: US-BAYER-2020-082674

PATIENT

DRUGS (1)
  1. CLARITIN [Suspect]
     Active Substance: LORATADINE
     Dosage: UNK
     Dates: start: 202004

REACTIONS (2)
  - Suspected product quality issue [None]
  - Drug ineffective [Unknown]

NARRATIVE: CASE EVENT DATE: 202004
